FAERS Safety Report 22164391 (Version 1)
Quarter: 2023Q2

REPORT INFORMATION
  Report Type: Spontaneous
  Country: FR (occurrence: FR)
  Receive Date: 20230403
  Receipt Date: 20230403
  Transmission Date: 20230721
  Serious: Yes (Hospitalization)
  Sender: FDA-Public Use
  Company Number: None

PATIENT
  Age: 59 Year
  Sex: Male

DRUGS (11)
  1. LOPERAMIDE HYDROCHLORIDE [Suspect]
     Active Substance: LOPERAMIDE HYDROCHLORIDE
     Indication: Poisoning deliberate
     Dosage: 40 MG, ONCE/SINGLE
     Route: 065
     Dates: start: 20230227, end: 20230227
  2. CETIRIZINE HYDROCHLORIDE [Suspect]
     Active Substance: CETIRIZINE HYDROCHLORIDE
     Indication: Poisoning deliberate
     Dosage: 150 MG, ONCE/SINGLE
     Route: 065
     Dates: start: 20230227, end: 20230227
  3. VALPROATE SODIUM [Suspect]
     Active Substance: VALPROATE SODIUM
     Indication: Epilepsy
     Dosage: 3 G,QD (COMPRIM? PELLICUL? S?CABLE ? LIB?RATION PROLONG?E)
     Route: 065
  4. VALIUM [Suspect]
     Active Substance: DIAZEPAM
     Indication: Poisoning deliberate
     Dosage: 400 MG
     Route: 065
     Dates: start: 20230227, end: 20230227
  5. STROMECTOL [Suspect]
     Active Substance: IVERMECTIN
     Indication: Poisoning deliberate
     Dosage: 36 MG, ONCE/SINGLE
     Route: 065
     Dates: start: 20230227, end: 20230227
  6. PHLOROGLUCINOL\1,3,5-TRIMETHOXYBENZENE [Suspect]
     Active Substance: PHLOROGLUCINOL\1,3,5-TRIMETHOXYBENZENE
     Indication: Poisoning deliberate
     Dosage: 800 MG, ONCE/SINGLE
     Route: 065
     Dates: start: 20230227, end: 20230227
  7. LOXEN [Concomitant]
     Indication: Product used for unknown indication
     Dosage: UNK
     Route: 065
  8. FENOFIBRATE [Concomitant]
     Active Substance: FENOFIBRATE
     Indication: Product used for unknown indication
     Dosage: UNK
     Route: 065
  9. MIRTAZAPINE [Concomitant]
     Active Substance: MIRTAZAPINE
     Indication: Product used for unknown indication
     Dosage: UNK
     Route: 065
  10. TAHOR [Concomitant]
     Active Substance: ATORVASTATIN CALCIUM
     Indication: Product used for unknown indication
     Dosage: UNK
     Route: 065
  11. PANTOPRAZOLE [Concomitant]
     Active Substance: PANTOPRAZOLE
     Indication: Product used for unknown indication
     Dosage: UNK
     Route: 065

REACTIONS (3)
  - Coma [Not Recovered/Not Resolved]
  - Hyperammonaemia [Not Recovered/Not Resolved]
  - Poisoning deliberate [Recovered/Resolved]

NARRATIVE: CASE EVENT DATE: 20230227
